FAERS Safety Report 6490598-4 (Version None)
Quarter: 2009Q4

REPORT INFORMATION
  Report Type: 
  Country: None (occurrence: None)
  Receive Date: 20091208
  Receipt Date: 20091203
  Transmission Date: 20100525
  Serious: Yes (Other)
  Sender: FDA-Public Use
  Company Number: CERZ-1000991

PATIENT
  Age: 61 Year
  Sex: Male
  Weight: 97 kg

DRUGS (2)
  1. CEREZYME [Suspect]
     Indication: GAUCHER'S DISEASE
     Dosage: 2800 U, Q2W, INTRAVENOUS; 3000 U, Q2W, INTRAVENOUS
     Route: 042
     Dates: start: 19961112
  2. CEREZYME [Suspect]
     Indication: GAUCHER'S DISEASE
     Dosage: 2800 U, Q2W, INTRAVENOUS; 3000 U, Q2W, INTRAVENOUS
     Route: 042
     Dates: start: 19970304

REACTIONS (5)
  - AORTIC DILATATION [None]
  - AORTIC VALVE INCOMPETENCE [None]
  - DEAFNESS UNILATERAL [None]
  - HYPOTENSION [None]
  - VASCULAR OCCLUSION [None]
